FAERS Safety Report 12565838 (Version 1)
Quarter: 2016Q3

REPORT INFORMATION
  Report Type: Spontaneous
  Country: US (occurrence: US)
  Receive Date: 20160718
  Receipt Date: 20160718
  Transmission Date: 20161109
  Serious: No
  Sender: FDA-Public Use
  Company Number: US-WEST-WARD PHARMACEUTICALS CORP.-US-H14001-16-00728

PATIENT
  Age: 6 Year
  Sex: Female
  Weight: 27.24 kg

DRUGS (1)
  1. AMOXICILLIN ORAL SUSPENSION USP [Suspect]
     Active Substance: AMOXICILLIN
     Indication: EAR INFECTION
     Route: 048
     Dates: start: 20160501, end: 20160502

REACTIONS (2)
  - Vomiting [Not Recovered/Not Resolved]
  - Fatigue [Unknown]

NARRATIVE: CASE EVENT DATE: 201605
